FAERS Safety Report 23545397 (Version 1)
Quarter: 2024Q1

REPORT INFORMATION
  Report Type: Spontaneous
  Country: DE (occurrence: DE)
  Receive Date: 20240220
  Receipt Date: 20240220
  Transmission Date: 20240409
  Serious: Yes (Other)
  Sender: FDA-Public Use
  Company Number: DE-009507513-2402DEU005388

PATIENT
  Age: 63 Year
  Sex: Male

DRUGS (1)
  1. KEYTRUDA [Suspect]
     Active Substance: PEMBROLIZUMAB
     Indication: Transitional cell carcinoma
     Dosage: UNK
     Dates: start: 20240214

REACTIONS (3)
  - Altered state of consciousness [Unknown]
  - Chills [Unknown]
  - Memory impairment [Unknown]

NARRATIVE: CASE EVENT DATE: 20240201
